FAERS Safety Report 9526225 (Version 1)
Quarter: 2013Q3

REPORT INFORMATION
  Report Type: Spontaneous
  Country: US (occurrence: US)
  Receive Date: 20130916
  Receipt Date: 20130916
  Transmission Date: 20140515
  Serious: Yes (Hospitalization)
  Sender: FDA-Public Use
  Company Number: US-ROCHE-1275388

PATIENT
  Age: 56 Year
  Sex: Male

DRUGS (2)
  1. XOLAIR [Suspect]
     Indication: ASTHMA
     Route: 065
     Dates: start: 201202
  2. XOLAIR [Suspect]
     Route: 065
     Dates: start: 201203

REACTIONS (2)
  - Asthma [Unknown]
  - Urticaria [Recovered/Resolved]
